FAERS Safety Report 7428155-5 (Version None)
Quarter: 2011Q2

REPORT INFORMATION
  Report Type: 
  Country: None (occurrence: None)
  Receive Date: 20110412
  Receipt Date: 20110322
  Transmission Date: 20111010
  Serious: Yes (Hospitalization)
  Sender: FDA-Public Use
  Company Number: 2011SP013228

PATIENT
  Age: 28 Year
  Sex: Male

DRUGS (3)
  1. PEGINTERFERON ALFA-2B [Suspect]
     Indication: HEPATITIS C
     Dosage: 80 MCG;QW
  2. URSODEOXICOLIC ACID [Concomitant]
  3. RIBAVIRIN [Suspect]
     Indication: HEPATITIS C
     Dosage: 1000 MG; PO
     Route: 048

REACTIONS (15)
  - STAPHYLOCOCCUS TEST POSITIVE [None]
  - ANTIBIOTIC RESISTANT STAPHYLOCOCCUS TEST POSITIVE [None]
  - VITAL CAPACITY DECREASED [None]
  - PO2 DECREASED [None]
  - PROTHROMBIN TIME SHORTENED [None]
  - ASTHENIA [None]
  - BACTERIAL TEST POSITIVE [None]
  - NEUTROPHIL COUNT DECREASED [None]
  - RESPIRATORY DISORDER [None]
  - FORCED EXPIRATORY VOLUME DECREASED [None]
  - DECREASED APPETITE [None]
  - HAEMOPHILUS TEST POSITIVE [None]
  - WEIGHT DECREASED [None]
  - HAEMOGLOBIN DECREASED [None]
  - BLOOD PH DECREASED [None]
